FAERS Safety Report 7305323-4 (Version None)
Quarter: 2011Q1

REPORT INFORMATION
  Report Type: 
  Country: None (occurrence: None)
  Receive Date: 20110222
  Receipt Date: 20110208
  Transmission Date: 20110831
  Serious: Yes (Hospitalization)
  Sender: FDA-Public Use
  Company Number: PHHY2011MX10701

PATIENT
  Age: 66 Year
  Sex: Female

DRUGS (1)
  1. CO-DIOVAN [Suspect]
     Dosage: 160 MG  VALS AND 12.5 MG HYDR
     Route: 048
     Dates: start: 20090312

REACTIONS (6)
  - YELLOW SKIN [None]
  - JAUNDICE [None]
  - PROCEDURAL HYPOTENSION [None]
  - GALLBLADDER DISORDER [None]
  - OCULAR ICTERUS [None]
  - HYPOTENSION [None]
